FAERS Safety Report 19829147 (Version 5)
Quarter: 2022Q1

REPORT INFORMATION
  Report Type: Report from Study
  Country: US (occurrence: US)
  Receive Date: 20210914
  Receipt Date: 20220310
  Transmission Date: 20220423
  Serious: Yes (Other)
  Sender: FDA-Public Use
  Company Number: US-INCYTE CORPORATION-2021IN007169

PATIENT

DRUGS (10)
  1. JAKAFI [Suspect]
     Active Substance: RUXOLITINIB
     Indication: Polycythaemia vera
     Dosage: UNK
     Route: 065
     Dates: start: 20210731, end: 20210807
  2. JAKAFI [Suspect]
     Active Substance: RUXOLITINIB
     Indication: Myelofibrosis
     Dosage: 10 MILLIGRAM, BID
     Route: 048
     Dates: start: 20210731, end: 20210806
  3. JAKAFI [Suspect]
     Active Substance: RUXOLITINIB
     Dosage: 5 MILLIGRAM, BID
     Route: 048
     Dates: start: 20210910
  4. JAKAFI [Suspect]
     Active Substance: RUXOLITINIB
     Dosage: 5 MILLIGRAM, BID
     Route: 048
  5. JAKAFI [Suspect]
     Active Substance: RUXOLITINIB
     Dosage: 5 MILLIGRAM, BID
     Route: 065
     Dates: start: 202110
  6. TORSEMIDE [Suspect]
     Active Substance: TORSEMIDE
     Dosage: 10-60MG, DAILY (DEPENDING ON A GRADUAL SCALE)
     Route: 065
  7. TORSEMIDE [Suspect]
     Active Substance: TORSEMIDE
     Dosage: 40 MILLIGRAM
     Route: 065
  8. TRUSOPT [Concomitant]
     Active Substance: DORZOLAMIDE HYDROCHLORIDE
     Indication: Product used for unknown indication
     Route: 065
  9. INSULIN LISPRO [Concomitant]
     Active Substance: INSULIN LISPRO
     Indication: Product used for unknown indication
     Route: 065
  10. TRAZODONE [Concomitant]
     Active Substance: TRAZODONE HYDROCHLORIDE
     Indication: Sleep disorder
     Route: 065

REACTIONS (30)
  - Myelofibrosis [Unknown]
  - Polycythaemia vera [Unknown]
  - SF3B1 gene mutation [Unknown]
  - Janus kinase 2 mutation [Unknown]
  - TET2 gene mutation [Unknown]
  - Orthostatic hypotension [Unknown]
  - COVID-19 [Unknown]
  - Angiopathy [Unknown]
  - Fluid retention [Unknown]
  - Dehydration [Unknown]
  - Renal function test abnormal [Unknown]
  - Hypotension [Unknown]
  - Full blood count decreased [Unknown]
  - Red blood cell count decreased [Unknown]
  - Urinary tract infection [Unknown]
  - Dizziness [Not Recovered/Not Resolved]
  - Anaemia [Not Recovered/Not Resolved]
  - Haemoglobin decreased [Recovering/Resolving]
  - Disease progression [Unknown]
  - White blood cell count increased [Unknown]
  - Platelet count increased [Unknown]
  - Red cell distribution width increased [Unknown]
  - Fatigue [Not Recovered/Not Resolved]
  - Laboratory test abnormal [Unknown]
  - Gastrooesophageal reflux disease [Not Recovered/Not Resolved]
  - Nasal congestion [Unknown]
  - Memory impairment [Recovering/Resolving]
  - Feeling abnormal [Unknown]
  - Platelet count abnormal [Unknown]
  - Haematocrit decreased [Unknown]

NARRATIVE: CASE EVENT DATE: 20210101
